FAERS Safety Report 5417982-1 (Version None)
Quarter: 2007Q3

REPORT INFORMATION
  Report Type: 
  Country: None (occurrence: None)
  Receive Date: 20070817
  Receipt Date: 20070807
  Transmission Date: 20080115
  Serious: Yes (Other)
  Sender: FDA-Public Use
  Company Number: JP-AVENTIS-200712089JP

PATIENT
  Age: 69 Year
  Sex: Male

DRUGS (7)
  1. LASIX [Suspect]
     Route: 048
     Dates: start: 20061101
  2. ADALAT [Concomitant]
     Route: 048
  3. ACTOS [Concomitant]
  4. OLMETEC [Concomitant]
  5. PERSANTIN [Concomitant]
  6. AMARYL [Concomitant]
  7. GLYCORAN [Concomitant]

REACTIONS (1)
  - STEVENS-JOHNSON SYNDROME [None]
